FAERS Safety Report 8405855-1 (Version None)
Quarter: 2012Q2

REPORT INFORMATION
  Report Type: 
  Country: None (occurrence: None)
  Receive Date: 20120604
  Receipt Date: 20120531
  Transmission Date: 20120825
  Serious: No
  Sender: FDA-Public Use
  Company Number: US-PFIZER INC-2012132283

PATIENT
  Sex: Male
  Weight: 83.9 kg

DRUGS (1)
  1. CHANTIX [Suspect]
     Indication: SMOKING CESSATION THERAPY
     Dosage: UNK, 2X/DAY
     Route: 048
     Dates: start: 20120101

REACTIONS (1)
  - NASOPHARYNGITIS [None]
